FAERS Safety Report 14906813 (Version 4)
Quarter: 2018Q3

REPORT INFORMATION
  Report Type: Report from Study
  Country: US (occurrence: US)
  Receive Date: 20180517
  Receipt Date: 20180709
  Transmission Date: 20181010
  Serious: No
  Sender: FDA-Public Use
  Company Number: US-ALEXION PHARMACEUTICALS INC.-A201805689

PATIENT
  Age: 56 Year
  Sex: Male
  Weight: 102.95 kg

DRUGS (4)
  1. STRENSIQ [Suspect]
     Active Substance: ASFOTASE ALFA
     Indication: HYPOPHOSPHATASIA
     Dosage: UNKNOWN
     Route: 058
     Dates: start: 201706
  2. STRENSIQ [Suspect]
     Active Substance: ASFOTASE ALFA
     Dosage: WITHDRAW 0.8 ML (80 MG) FROM 1 OF THE 80 MG/0.8ML VIALS (GREEN LID), 0.58 ML (23 MG) FROM 1 OF THE 2
     Route: 058
  3. STRENSIQ [Suspect]
     Active Substance: ASFOTASE ALFA
     Dosage: UNK
     Route: 065
  4. STRENSIQ [Suspect]
     Active Substance: ASFOTASE ALFA
     Dosage: UNKNOWN
     Route: 058
     Dates: start: 201706

REACTIONS (7)
  - Urine odour abnormal [Unknown]
  - Skin exfoliation [Unknown]
  - Impaired work ability [Unknown]
  - Pain [Not Recovered/Not Resolved]
  - Fatigue [Recovered/Resolved]
  - Blood alkaline phosphatase increased [Unknown]
  - Nausea [Recovered/Resolved]

NARRATIVE: CASE EVENT DATE: 201804
